FAERS Safety Report 7679989-3 (Version None)
Quarter: 2011Q3

REPORT INFORMATION
  Report Type: 
  Country: None (occurrence: None)
  Receive Date: 20110812
  Receipt Date: 20110801
  Transmission Date: 20111222
  Serious: Yes (Hospitalization)
  Sender: FDA-Public Use
  Company Number: US-JNJFOC-20080306358

PATIENT
  Sex: Male
  Weight: 67 kg

DRUGS (9)
  1. REMICADE [Suspect]
     Route: 042
     Dates: start: 20031015
  2. MESALAMINE [Concomitant]
     Route: 048
  3. URSODIOL [Concomitant]
  4. PREVACID [Concomitant]
  5. REMICADE [Suspect]
     Route: 042
     Dates: start: 20031015
  6. REMICADE [Suspect]
     Indication: DRUG DEPENDENCE
     Route: 042
     Dates: start: 20080317
  7. ORAL SUPPLEMENTS [Concomitant]
  8. REMICADE [Suspect]
     Indication: CROHN'S DISEASE
     Route: 042
     Dates: start: 20080317
  9. METHOTREXATE [Concomitant]

REACTIONS (1)
  - GASTRITIS [None]
